FAERS Safety Report 21922792 (Version 1)
Quarter: 2023Q1

REPORT INFORMATION
  Report Type: Spontaneous
  Country: US (occurrence: US)
  Receive Date: 20230128
  Receipt Date: 20230128
  Transmission Date: 20230418
  Serious: No
  Sender: FDA-Public Use
  Company Number: US-drreddys-SPO/USA/22/0158820

PATIENT
  Age: 77 Year
  Sex: Female

DRUGS (15)
  1. LENALIDOMIDE [Suspect]
     Active Substance: LENALIDOMIDE
     Indication: Plasma cell myeloma
     Dosage: TAKE 1 CAPSULE (25MG) BY MOUTH EVERY DAY ON DAYS 1-21 OF EACH 28 DAY CYCLE
     Route: 048
     Dates: start: 20221026
  2. ALLOPURINOL [Concomitant]
     Active Substance: ALLOPURINOL
     Indication: Product used for unknown indication
  3. METFORMIN [Concomitant]
     Active Substance: METFORMIN HYDROCHLORIDE
     Indication: Product used for unknown indication
  4. OMEPRAZOLE [Concomitant]
     Active Substance: OMEPRAZOLE
     Indication: Product used for unknown indication
  5. FEXOFENADINE HCL [Concomitant]
     Active Substance: FEXOFENADINE HYDROCHLORIDE
     Indication: Product used for unknown indication
  6. MORPHINE SUL TAB 15MG [Concomitant]
     Indication: Product used for unknown indication
  7. DARZALEX SOL 400MG/20ML [Concomitant]
     Indication: Product used for unknown indication
  8. GLIPIZIDE [Concomitant]
     Active Substance: GLIPIZIDE
     Indication: Product used for unknown indication
  9. IMODIUM A-D TAB 2MG [Concomitant]
     Indication: Product used for unknown indication
  10. LEVEMIR SOL 100UNIT/ML [Concomitant]
     Indication: Product used for unknown indication
     Dosage: 100UNIT/ML
  11. SULFAMETHOXA TAB 800-160M [Concomitant]
     Indication: Product used for unknown indication
     Dosage: 800-160M
  12. VELCADE SOL 3.5MG [Concomitant]
     Indication: Product used for unknown indication
  13. ACYCLOVIR TAB  800MG [Concomitant]
     Indication: Product used for unknown indication
  14. ASPIRIN 81 CHE 81MG [Concomitant]
     Indication: Product used for unknown indication
  15. DEXAMETHASONE [Concomitant]
     Active Substance: DEXAMETHASONE
     Indication: Product used for unknown indication

REACTIONS (5)
  - Pain [Not Recovered/Not Resolved]
  - Oedema peripheral [Not Recovered/Not Resolved]
  - Rash erythematous [Not Recovered/Not Resolved]
  - Dry skin [Not Recovered/Not Resolved]
  - Vision blurred [Not Recovered/Not Resolved]
